FAERS Safety Report 8229390-9 (Version None)
Quarter: 2012Q1

REPORT INFORMATION
  Report Type: 
  Country: None (occurrence: None)
  Receive Date: 20120322
  Receipt Date: 20120313
  Transmission Date: 20120608
  Serious: Yes (Other)
  Sender: FDA-Public Use
  Company Number: US-JNJFOC-20120307091

PATIENT
  Sex: Female
  Weight: 132 kg

DRUGS (20)
  1. PRAVASTATIN [Concomitant]
     Route: 048
  2. BUMETANID [Concomitant]
     Route: 048
  3. SODIUM BICARBONATE [Concomitant]
     Route: 048
  4. LAMOTRIGINE [Concomitant]
     Route: 048
  5. FAMOTIDINE [Concomitant]
     Route: 048
  6. TOPIRAMATE [Concomitant]
     Route: 048
  7. METFORMIN HCL [Concomitant]
     Route: 048
  8. AMBIEN [Concomitant]
     Route: 048
  9. XARELTO [Suspect]
     Indication: KNEE ARTHROPLASTY
     Route: 048
     Dates: start: 20120207, end: 20120220
  10. ARMODAFINIL [Concomitant]
     Route: 048
  11. TRAZODONE HCL [Concomitant]
     Route: 048
  12. ALBUTEROL [Concomitant]
     Dosage: 2 PUFFS
     Route: 055
  13. GABAPENTIN [Concomitant]
     Route: 048
  14. GEODON [Concomitant]
     Route: 048
  15. VENLAFAXINE [Concomitant]
     Route: 048
  16. CLONIDINE [Concomitant]
     Route: 048
  17. ALLOPURINOL [Concomitant]
     Route: 048
  18. DICYCLOMINE [Concomitant]
     Route: 048
  19. SPIRONOLACTONE [Concomitant]
     Route: 048
  20. VITAMIN B COMPLEX CAP [Concomitant]
     Route: 048

REACTIONS (1)
  - PULMONARY EMBOLISM [None]
